FAERS Safety Report 7518174-2 (Version None)
Quarter: 2011Q2

REPORT INFORMATION
  Report Type: 
  Country: None (occurrence: None)
  Receive Date: 20110531
  Receipt Date: 20110531
  Transmission Date: 20111010
  Serious: No
  Sender: FDA-Public Use
  Company Number: None

PATIENT
  Sex: Female
  Weight: 64.4108 kg

DRUGS (1)
  1. BUPROPION HYDROCHLORIDE [Suspect]
     Dosage: 150MG PO DAILY
     Route: 048

REACTIONS (1)
  - DRUG INEFFECTIVE [None]
